FAERS Safety Report 8480836-0 (Version None)
Quarter: 2012Q2

REPORT INFORMATION
  Report Type: 
  Country: None (occurrence: None)
  Receive Date: 20120620
  Receipt Date: 20120614
  Transmission Date: 20120825
  Serious: Yes (Life-Threatening)
  Sender: FDA-Public Use
  Company Number: 2012SP033144

PATIENT
  Age: 64 Year
  Sex: Male

DRUGS (8)
  1. THALIDOMIDE [Suspect]
     Indication: MULTIPLE MYELOMA
  2. BENDAMUSTINE HYDROCHLORIDE [Suspect]
     Indication: MULTIPLE MYELOMA
     Dosage: 100 MG/M2;IV 50 MG/M2;IV
     Route: 042
     Dates: start: 20110928, end: 20120509
  3. ACYCLOVIR [Concomitant]
  4. ONDANSETRON [Concomitant]
  5. COTRIM [Concomitant]
  6. FLUCONAZOLE [Concomitant]
  7. DEXAMETHASONE [Suspect]
     Indication: MULTIPLE MYELOMA
  8. LANSOPRAZOLE [Concomitant]

REACTIONS (4)
  - HYPOKALAEMIA [None]
  - BLOOD MAGNESIUM DECREASED [None]
  - DIARRHOEA [None]
  - ELECTROLYTE IMBALANCE [None]
